FAERS Safety Report 10878945 (Version 1)
Quarter: 2015Q1

REPORT INFORMATION
  Report Type: Spontaneous
  Country: US (occurrence: None)
  Receive Date: 20150224
  Receipt Date: 20150224
  Transmission Date: 20150721
  Serious: Yes (Hospitalization)
  Sender: FDA-Public Use
  Company Number: None

PATIENT
  Age: 83 Year
  Sex: Male
  Weight: 85.9 kg

DRUGS (1)
  1. LISINOPRIL. [Suspect]
     Active Substance: LISINOPRIL
     Indication: HYPERTENSION
     Route: 048
     Dates: start: 20001122, end: 20090805

REACTIONS (15)
  - Asthenia [None]
  - Bradycardia [None]
  - Hyperkalaemia [None]
  - Balance disorder [None]
  - Electrocardiogram T wave peaked [None]
  - Electrocardiogram QRS complex prolonged [None]
  - Productive cough [None]
  - Hypotension [None]
  - Atrioventricular block first degree [None]
  - Pain [None]
  - Chills [None]
  - Blood creatinine increased [None]
  - Dizziness [None]
  - Vomiting [None]
  - Memory impairment [None]

NARRATIVE: CASE EVENT DATE: 20090805
